FAERS Safety Report 10977771 (Version 1)
Quarter: 2015Q1

REPORT INFORMATION
  Report Type: Spontaneous
  Country: JP (occurrence: None)
  Receive Date: 20150330
  Receipt Date: 20150330
  Transmission Date: 20150721
  Serious: Yes (Other)
  Sender: FDA-Public Use
  Company Number: JP-20150060

PATIENT
  Age: 74 Year
  Sex: Female

DRUGS (2)
  1. EPIRUBICIN (EPIRUBICIN) (EPIRUBICIN) [Concomitant]
     Active Substance: EPIRUBICIN
  2. LIPIODOL ULTRA-FLUIDE [Suspect]
     Active Substance: ETHIODIZED OIL
     Indication: THERAPEUTIC EMBOLISATION
     Route: 013

REACTIONS (3)
  - Blood pressure decreased [None]
  - Product use issue [None]
  - Dyspnoea [None]

NARRATIVE: CASE EVENT DATE: 2005
